FAERS Safety Report 17295287 (Version 3)
Quarter: 2020Q3

REPORT INFORMATION
  Report Type: Spontaneous
  Country: US (occurrence: US)
  Receive Date: 20200121
  Receipt Date: 20200821
  Transmission Date: 20201102
  Serious: No
  Sender: FDA-Public Use
  Company Number: US-PFIZER INC-2020026272

PATIENT
  Age: 69 Year
  Sex: Female

DRUGS (3)
  1. IBRANCE [Suspect]
     Active Substance: PALBOCICLIB
     Dosage: 125 MG
     Dates: start: 20200808
  2. IBRANCE [Suspect]
     Active Substance: PALBOCICLIB
     Dosage: 125 MG
     Dates: start: 20190517
  3. IBRANCE [Suspect]
     Active Substance: PALBOCICLIB
     Dosage: 125 MG
     Dates: start: 20200301, end: 2020

REACTIONS (10)
  - Aphthous ulcer [Unknown]
  - Peripheral swelling [Unknown]
  - Rash [Unknown]
  - Fluid retention [Unknown]
  - Illness [Unknown]
  - Pruritus [Recovered/Resolved]
  - Stress [Unknown]
  - Herpes zoster [Unknown]
  - Rash erythematous [Unknown]
  - Dry skin [Unknown]

NARRATIVE: CASE EVENT DATE: 201912
